FAERS Safety Report 8739359 (Version 2)
Quarter: 2012Q4

REPORT INFORMATION
  Report Type: 
  Country: US (occurrence: US)
  Receive Date: 20120823
  Receipt Date: 20121003
  Transmission Date: 20130627
  Serious: Yes (Death)
  Sender: FDA-Public Use
  Company Number: US-CELGENEUS-163-21880-12082202

PATIENT
  Sex: Male

DRUGS (12)
  1. REVLIMID [Suspect]
     Indication: MULTIPLE MYELOMA
     Dosage: 25 Milligram
     Route: 048
     Dates: start: 20090212, end: 2009
  2. REVLIMID [Suspect]
     Dosage: 10 Milligram
     Route: 048
     Dates: start: 201005, end: 2011
  3. REVLIMID [Suspect]
     Dosage: 15 Milligram
     Route: 048
     Dates: start: 201107, end: 20120110
  4. DECADRON [Concomitant]
     Indication: MULTIPLE MYELOMA
     Dosage: 40 Milligram
     Route: 065
     Dates: start: 20090212
  5. VELCADE [Concomitant]
     Indication: MULTIPLE MYELOMA
     Route: 065
     Dates: start: 20090401, end: 200907
  6. CYCLOPHOSPHAMIDE [Concomitant]
     Indication: DRUG USE FOR UNKNOWN INDICATION
     Route: 065
     Dates: start: 200908
  7. MESNA [Concomitant]
     Indication: DRUG USE FOR UNKNOWN INDICATION
     Route: 065
     Dates: start: 200908
  8. VANCO [Concomitant]
     Indication: CATHETER INFECTION
     Route: 065
     Dates: start: 20091228, end: 20100101
  9. AMIKACIN [Concomitant]
     Indication: CATHETER INFECTION
     Route: 065
     Dates: start: 20091228, end: 20100101
  10. CIPRO [Concomitant]
     Indication: CATHETER INFECTION
     Route: 065
     Dates: start: 20091228, end: 20100101
  11. NEULASTA [Concomitant]
     Indication: CHEMOTHERAPY
     Route: 065
     Dates: start: 20100125
  12. CEFEPIME [Concomitant]
     Indication: DRUG USE FOR UNKNOWN INDICATION
     Route: 065

REACTIONS (1)
  - Plasma cell myeloma [Fatal]
